FAERS Safety Report 12319567 (Version 1)
Quarter: 2016Q2

REPORT INFORMATION
  Report Type: Other
  Country: IT (occurrence: IT)
  Receive Date: 20160429
  Receipt Date: 20160429
  Transmission Date: 20160815
  Serious: Yes (Death, Other)
  Sender: FDA-Public Use
  Company Number: IT-MYLANLABS-2016M1017235

PATIENT

DRUGS (6)
  1. FONDAPARINUX [Suspect]
     Active Substance: FONDAPARINUX
     Indication: THROMBOSIS PROPHYLAXIS
     Dosage: 2.5 MG, QD
     Route: 058
     Dates: start: 20160405, end: 20160411
  2. SELEPARINA [Suspect]
     Active Substance: NADROPARIN CALCIUM
     Dosage: 0.4 ML, QD
     Route: 058
     Dates: start: 20160402, end: 20160405
  3. SELEPARINA [Suspect]
     Active Substance: NADROPARIN CALCIUM
     Indication: THROMBOSIS PROPHYLAXIS
     Dosage: 0.4 ML, QD
     Route: 058
     Dates: start: 20160326, end: 20160328
  4. LEVOXACIN [Concomitant]
     Active Substance: LEVOFLOXACIN
     Indication: PNEUMONIA
     Dosage: UNK
     Route: 042
  5. ACTILYSE [Suspect]
     Active Substance: ALTEPLASE
     Indication: ISCHAEMIC STROKE
     Dosage: UNK
     Route: 042
     Dates: start: 20160326, end: 20160326
  6. HUMALOG [Concomitant]
     Active Substance: INSULIN LISPRO
     Indication: PRODUCT USED FOR UNKNOWN INDICATION
     Dosage: UNK
     Route: 058

REACTIONS (2)
  - Cerebral haemorrhage [Fatal]
  - Thrombocytopenia [Fatal]

NARRATIVE: CASE EVENT DATE: 20160407
